FAERS Safety Report 7405489-1 (Version None)
Quarter: 2011Q2

REPORT INFORMATION
  Report Type: 
  Country: None (occurrence: None)
  Receive Date: 20110404
  Receipt Date: 20110330
  Transmission Date: 20111010
  Serious: Yes (Other)
  Sender: FDA-Public Use
  Company Number: 2011SP014470

PATIENT
  Age: 28 Year
  Sex: Female

DRUGS (1)
  1. MERCILON (DESOGESTREL/ETYHINYLESTRADIOL /00570801/) [Suspect]
     Indication: PRODUCT USED FOR UNKNOWN INDICATION

REACTIONS (2)
  - LIP SWELLING [None]
  - RASH [None]
